FAERS Safety Report 6601663-2 (Version None)
Quarter: 2010Q1

REPORT INFORMATION
  Report Type: 
  Country: None (occurrence: None)
  Receive Date: 20100218
  Receipt Date: 20100127
  Transmission Date: 20100710
  Serious: Yes (Death, Hospitalization)
  Sender: FDA-Public Use
  Company Number: 2009AC000334

PATIENT
  Age: 68 Year
  Sex: Male

DRUGS (29)
  1. DIGOXIN [Suspect]
     Dosage: PO
     Route: 048
     Dates: start: 20070427
  2. DIGOXIN [Suspect]
     Dosage: .25 MG; PO
     Route: 048
     Dates: start: 20040810, end: 20060818
  3. DIGOXIN [Suspect]
     Dosage: .125 MG; PO
     Route: 048
     Dates: start: 20060818, end: 20070327
  4. ROXANOL [Concomitant]
  5. ATIVAN [Concomitant]
  6. TYLENOL (CAPLET) [Concomitant]
  7. COMPAZINE [Concomitant]
  8. COLACE [Concomitant]
  9. PROVIGIL [Concomitant]
  10. POTASSIUM [Concomitant]
  11. ZESTRIL [Concomitant]
  12. FUROSEMIDE [Concomitant]
  13. LIPITOR [Concomitant]
  14. PREDNISONE [Concomitant]
  15. METHOTREXATE [Concomitant]
  16. PROTONIX /01263201/ [Concomitant]
  17. LEXAPRO [Concomitant]
  18. ASPIRIN [Concomitant]
  19. DULCOLAX [Concomitant]
  20. NAMENDA [Concomitant]
  21. FOSAMAX [Concomitant]
  22. CELEBREX [Concomitant]
  23. BENAZEPRIL HYDROCHLORIDE [Concomitant]
  24. ADVAIR DISKUS 100/50 [Concomitant]
  25. ALBUTEROL [Concomitant]
  26. LOTENSIN [Concomitant]
  27. PREDNISONE [Concomitant]
  28. SPIRIVA [Concomitant]
  29. AZITHROMYC [Concomitant]

REACTIONS (26)
  - ACUTE RESPIRATORY FAILURE [None]
  - ADRENAL INSUFFICIENCY [None]
  - ANAEMIA [None]
  - BUNDLE BRANCH BLOCK RIGHT [None]
  - CARDIOMYOPATHY [None]
  - CEREBROVASCULAR ACCIDENT [None]
  - CHEST PAIN [None]
  - CHRONIC OBSTRUCTIVE PULMONARY DISEASE [None]
  - DEMENTIA [None]
  - DEMENTIA ALZHEIMER'S TYPE [None]
  - DYSLIPIDAEMIA [None]
  - DYSPNOEA [None]
  - ECONOMIC PROBLEM [None]
  - HYPERGLYCAEMIA [None]
  - HYPERHIDROSIS [None]
  - HYPERTENSION [None]
  - LEUKOCYTOSIS [None]
  - MULTIPLE INJURIES [None]
  - OSTEOARTHRITIS [None]
  - PARKINSONISM [None]
  - PNEUMONIA ASPIRATION [None]
  - PNEUMONIA STAPHYLOCOCCAL [None]
  - SEPTIC SHOCK [None]
  - SURGERY [None]
  - THROMBOCYTOPENIA [None]
  - VASCULAR DEMENTIA [None]
